FAERS Safety Report 10283435 (Version 2)
Quarter: 2014Q3

REPORT INFORMATION
  Report Type: Spontaneous
  Country: US (occurrence: None)
  Receive Date: 20140702
  Receipt Date: 20140715
  Transmission Date: 20150326
  Serious: Yes (Hospitalization)
  Sender: FDA-Public Use
  Company Number: 20140371

PATIENT
  Age: 46 Year
  Sex: Male

DRUGS (5)
  1. PREDNISONE. [Suspect]
     Active Substance: PREDNISONE
     Indication: ILL-DEFINED DISORDER
  2. OLMESARTAN MEDOXOMIL-HYDROCHLOROTHIAZIDE [Concomitant]
  3. SIMVASTATIN. [Concomitant]
     Active Substance: SIMVASTATIN
  4. LISINOPRIL. [Concomitant]
     Active Substance: LISINOPRIL
  5. CYCLOSPORINE INJECTION, USP (866-10) 50 MG/ML [Suspect]
     Active Substance: CYCLOSPORINE
     Indication: ILL-DEFINED DISORDER

REACTIONS (3)
  - Drug ineffective [None]
  - Herpes zoster [None]
  - Nonspecific reaction [None]
